FAERS Safety Report 9001655 (Version 1)
Quarter: 2013Q1

REPORT INFORMATION
  Report Type: Spontaneous
  Country: US (occurrence: US)
  Receive Date: 20130107
  Receipt Date: 20130107
  Transmission Date: 20140127
  Serious: Yes (Hospitalization, Other)
  Sender: FDA-Public Use
  Company Number: US-009507513-1301USA001312

PATIENT
  Age: 57 Year
  Sex: Male

DRUGS (5)
  1. SINGULAIR [Suspect]
     Dosage: 10 MG, UNKNOWN
     Route: 048
  2. FLOVENT [Suspect]
     Dosage: 250MCG/INHALED RESPIRATORY (INHALATION)
  3. ZAFIRLUKAST [Suspect]
     Dosage: 20MG
     Route: 048
  4. FORMOTEROL FUMARATE [Concomitant]
  5. ALBUTEROL SULFATE [Concomitant]

REACTIONS (3)
  - Mononeuritis [Unknown]
  - Eosinophil count increased [Unknown]
  - Allergic granulomatous angiitis [Unknown]
